FAERS Safety Report 7779410-0 (Version None)
Quarter: 2011Q3

REPORT INFORMATION
  Report Type: 
  Country: None (occurrence: None)
  Receive Date: 20110927
  Receipt Date: 20110921
  Transmission Date: 20111222
  Serious: No
  Sender: FDA-Public Use
  Company Number: US-BIOGENIDEC-2010BI016846

PATIENT
  Sex: Female

DRUGS (3)
  1. TYSABRI [Suspect]
     Indication: MULTIPLE SCLEROSIS
     Route: 042
     Dates: start: 20090812, end: 20090915
  2. TYSABRI [Suspect]
     Route: 042
     Dates: start: 20101028
  3. AVONEX [Concomitant]
     Indication: MULTIPLE SCLEROSIS
     Route: 030

REACTIONS (4)
  - OPTIC NEURITIS [None]
  - PLASMAPHERESIS [None]
  - COORDINATION ABNORMAL [None]
  - DRUG INEFFECTIVE [None]
